FAERS Safety Report 6267295-3 (Version None)
Quarter: 2009Q3

REPORT INFORMATION
  Report Type: 
  Country: None (occurrence: None)
  Receive Date: 20090714
  Receipt Date: 20090708
  Transmission Date: 20100115
  Serious: Yes (Hospitalization)
  Sender: FDA-Public Use
  Company Number: FR-PFIZER INC-2009237446

PATIENT
  Age: 70 Year

DRUGS (3)
  1. TAHOR [Suspect]
     Dosage: UNK
     Route: 048
     Dates: end: 20090426
  2. AMOXICILLIN TRIHYDRATE [Suspect]
     Indication: SEPSIS
     Dosage: UNK
     Route: 048
     Dates: start: 20090414, end: 20090426
  3. PREVISCAN [Suspect]
     Indication: CORONARY ARTERY INSUFFICIENCY
     Dosage: UNK
     Route: 048
     Dates: start: 20090425, end: 20090426

REACTIONS (1)
  - ERYTHEMA [None]
